FAERS Safety Report 8821756 (Version 1)
Quarter: 2012Q4

REPORT INFORMATION
  Report Type: 
  Country: US (occurrence: US)
  Receive Date: 20121002
  Receipt Date: 20121002
  Transmission Date: 20130627
  Serious: Yes (Other)
  Sender: FDA-Public Use
  Company Number: US-MERCK-1210USA000465

PATIENT
  Sex: Female

DRUGS (22)
  1. JANUMET [Suspect]
     Route: 048
  2. ZOCOR [Suspect]
     Route: 048
  3. AGGRENOX [Suspect]
     Route: 048
  4. GABAPENTIN [Suspect]
     Route: 048
  5. VICODIN [Suspect]
     Route: 048
  6. ZANAFLEX [Suspect]
     Dosage: 4 mg, UNK
     Route: 048
  7. VALSARTAN [Suspect]
     Dosage: 160 mg, UNK
     Route: 048
  8. BUPROPION HYDROCHLORIDE [Suspect]
     Dosage: 300 mg, UNK
     Route: 048
  9. LOZOL [Suspect]
     Dosage: 1.25 mg, UNK
     Route: 048
  10. METFORMIN [Suspect]
     Dosage: 500 mg, UNK
     Route: 048
  11. KLONOPIN [Suspect]
     Dosage: 1 mg, UNK
     Route: 048
  12. PRILOSEC [Suspect]
     Dosage: 40 mg, UNK
     Route: 048
  13. CARAFATE [Suspect]
     Dosage: 2 g, UNK
     Route: 048
  14. FLONASE [Suspect]
     Route: 055
  15. FLOVENT [Suspect]
     Dosage: 440 Microgram, UNK
  16. VENTOLIN (ALBUTEROL SULFATE) [Suspect]
  17. IMITREX (SUMATRIPTAN SUCCINATE) [Suspect]
     Route: 048
  18. NITROLINGUAL [Suspect]
  19. EPIPEN [Suspect]
     Route: 062
  20. LORTAB [Suspect]
     Route: 048
  21. VITAMINS (UNSPECIFIED) [Suspect]
     Route: 048
  22. ZYRTEC [Suspect]
     Dosage: 10 mg, UNK
     Route: 048

REACTIONS (14)
  - Cardiac disorder [Unknown]
  - Depression [Unknown]
  - Panic attack [Unknown]
  - Gastrooesophageal reflux disease [Unknown]
  - Condition aggravated [Unknown]
  - Muscle spasms [Unknown]
  - Diabetic neuropathy [Unknown]
  - Anxiety [Unknown]
  - Memory impairment [Unknown]
  - Arterial disorder [Unknown]
  - Diabetes mellitus [Unknown]
  - Asthma [Unknown]
  - Fibromyalgia [Unknown]
  - Arthralgia [Unknown]
